FAERS Safety Report 7736948-X (Version None)
Quarter: 2011Q3

REPORT INFORMATION
  Report Type: 
  Country: None (occurrence: None)
  Receive Date: 20110908
  Receipt Date: 20110829
  Transmission Date: 20111222
  Serious: Yes (Hospitalization, Other)
  Sender: FDA-Public Use
  Company Number: BR-GENENTECH-306327

PATIENT
  Sex: Female
  Weight: 50 kg

DRUGS (21)
  1. DEFLAZACORT [Concomitant]
     Dosage: 2 MG, UNK
  2. RITUXIMAB [Suspect]
     Dosage: 1000 MG, UNK
     Route: 042
     Dates: start: 20110324
  3. RANITIDINE [Concomitant]
     Indication: PRODUCT USED FOR UNKNOWN INDICATION
     Dosage: 150 MG, UNK
  4. CAPTOPRIL [Concomitant]
     Indication: HYPERTENSION
     Dosage: 25 MG, BID
  5. CELESTONE TAB [Concomitant]
     Indication: PRODUCT USED FOR UNKNOWN INDICATION
     Dosage: UNK
     Dates: start: 20091126
  6. LEVOTHYROXINE SODIUM [Concomitant]
     Indication: PRODUCT USED FOR UNKNOWN INDICATION
     Dosage: 50 A?G, UNK
  7. DEFLAZACORT [Concomitant]
     Dosage: 3 MG, UNK
  8. HYDROXYCHLOROQUINE [Concomitant]
     Dosage: 150 MG, UNK
  9. NORIPURUM [Concomitant]
     Indication: PRODUCT USED FOR UNKNOWN INDICATION
     Dosage: UNK
  10. CHLOROQUINE PHOSPHATE [Concomitant]
     Indication: PRODUCT USED FOR UNKNOWN INDICATION
  11. RITUXIMAB [Suspect]
     Dosage: 1000 MG, UNK
     Route: 042
     Dates: start: 20100901
  12. AZITHROMYCIN [Suspect]
     Indication: PYREXIA
  13. AMLODIPINE [Concomitant]
     Indication: PRODUCT USED FOR UNKNOWN INDICATION
  14. RITUXIMAB [Suspect]
     Indication: LUPUS NEPHRITIS
     Dosage: 1000 MG/KG, Q15D
     Route: 042
     Dates: start: 20090210, end: 20100308
  15. HYDROXYCHLOROQUINE [Concomitant]
     Indication: PRODUCT USED FOR UNKNOWN INDICATION
     Dosage: 200 MG, UNK
  16. HYDROCHLOROTHIAZIDE [Concomitant]
     Indication: HYPERTENSION
     Dosage: UNK
  17. RITUXIMAB [Suspect]
     Dosage: 1000 MG, UNK
     Route: 042
     Dates: start: 20110407
  18. AZITHROMYCIN [Suspect]
     Indication: OROPHARYNGEAL PAIN
     Dosage: 500 MG, UNK
     Route: 065
  19. LEVOTHYROXINE SODIUM [Concomitant]
     Dosage: 75 A?G, UNK
  20. DEFLAZACORT [Concomitant]
     Indication: PRODUCT USED FOR UNKNOWN INDICATION
     Dosage: 3 MG, UNK
  21. PREDNISONE [Concomitant]
     Indication: PRODUCT USED FOR UNKNOWN INDICATION

REACTIONS (36)
  - ORAL HERPES [None]
  - ERYTHEMA [None]
  - NAUSEA [None]
  - HAND DEFORMITY [None]
  - FINGER DEFORMITY [None]
  - SWELLING [None]
  - TOOTH FRACTURE [None]
  - COUGH [None]
  - PRURITUS [None]
  - PYREXIA [None]
  - BURNING SENSATION [None]
  - RHEUMATOID ARTHRITIS [None]
  - MALAISE [None]
  - MUSCULOSKELETAL DISCOMFORT [None]
  - HOT FLUSH [None]
  - JOINT RANGE OF MOTION DECREASED [None]
  - WEIGHT INCREASED [None]
  - HYPERSENSITIVITY [None]
  - HEADACHE [None]
  - DECREASED APPETITE [None]
  - OROPHARYNGEAL SWELLING [None]
  - DYSPNOEA [None]
  - PAIN [None]
  - DIZZINESS [None]
  - OROPHARYNGEAL PAIN [None]
  - RENAL FAILURE [None]
  - FATIGUE [None]
  - LYMPHADENOPATHY [None]
  - ANAEMIA [None]
  - DEFAECATION URGENCY [None]
  - OEDEMA PERIPHERAL [None]
  - TACHYCARDIA [None]
  - SENSATION OF FOREIGN BODY [None]
  - ROTAVIRUS INFECTION [None]
  - WHITE BLOOD CELL COUNT DECREASED [None]
  - VOMITING [None]
